FAERS Safety Report 9644886 (Version 2)
Quarter: 2013Q4

REPORT INFORMATION
  Report Type: Report from Study
  Country: DE (occurrence: DE)
  Receive Date: 20131025
  Receipt Date: 20131030
  Transmission Date: 20140711
  Serious: Yes (Hospitalization)
  Sender: FDA-Public Use
  Company Number: PHHO2013DE013719

PATIENT
  Sex: 0

DRUGS (3)
  1. FTY [Suspect]
     Indication: RELAPSING-REMITTING MULTIPLE SCLEROSIS
     Dosage: 0.5 MG, UNK
     Route: 048
     Dates: start: 20131018
  2. BACLOFEN [Concomitant]
     Indication: MUSCLE SPASTICITY
     Dosage: 5 MG, BID
     Dates: start: 20121130
  3. DETRUSITOL [Concomitant]
     Indication: BLADDER DISORDER
     Dosage: 2 MG, 1/2-0-1/2

REACTIONS (1)
  - Syncope [Unknown]
